FAERS Safety Report 9603107 (Version 1)
Quarter: 2013Q4

REPORT INFORMATION
  Report Type: Spontaneous
  Country: JP (occurrence: JP)
  Receive Date: 20131007
  Receipt Date: 20131007
  Transmission Date: 20140711
  Serious: Yes (Other)
  Sender: FDA-Public Use
  Company Number: JP-GLAXOSMITHKLINE-B0927612A

PATIENT
  Age: 87 Year
  Sex: Male

DRUGS (10)
  1. AVOLVE [Suspect]
     Indication: BENIGN PROSTATIC HYPERPLASIA
     Route: 048
     Dates: start: 20130925
  2. ARICEPT [Concomitant]
     Route: 048
  3. SERMION [Concomitant]
     Route: 048
  4. URIEF [Concomitant]
     Route: 048
  5. PREMINENT [Concomitant]
     Route: 048
  6. CALBLOCK [Concomitant]
     Route: 048
  7. PLAVIX [Concomitant]
     Route: 048
  8. AMARYL [Concomitant]
     Route: 048
  9. ACTOS [Concomitant]
     Route: 048
  10. UNKNOWN DRUG [Concomitant]
     Route: 048

REACTIONS (3)
  - Dementia [Unknown]
  - Disorientation [Unknown]
  - Abnormal behaviour [Unknown]
